FAERS Safety Report 23039645 (Version 1)
Quarter: 2023Q4

REPORT INFORMATION
  Report Type: Spontaneous
  Country: US (occurrence: None)
  Receive Date: 20231006
  Receipt Date: 20231006
  Transmission Date: 20240109
  Serious: Yes (Life-Threatening)
  Sender: FDA-Public Use
  Company Number: 2023A226656

PATIENT
  Age: 49 Year
  Sex: Female

DRUGS (1)
  1. BENRALIZUMAB [Suspect]
     Active Substance: BENRALIZUMAB
     Indication: Asthma
     Route: 058

REACTIONS (11)
  - Anaphylactic reaction [Unknown]
  - Wheezing [Unknown]
  - Oropharyngeal pain [Unknown]
  - Generalised oedema [Unknown]
  - Haemoptysis [Unknown]
  - Peripheral swelling [Unknown]
  - Swollen tongue [Unknown]
  - Swelling face [Unknown]
  - Haemophilus infection [Unknown]
  - Staphylococcal infection [Unknown]
  - Aspergillus infection [Unknown]
